FAERS Safety Report 16779605 (Version 1)
Quarter: 2019Q3

REPORT INFORMATION
  Report Type: Spontaneous
  Country: GB (occurrence: GB)
  Receive Date: 20190906
  Receipt Date: 20190906
  Transmission Date: 20191005
  Serious: Yes (Other)
  Sender: FDA-Public Use
  Company Number: GB-TEVA-2019-GB-1102612

PATIENT
  Age: 80 Year
  Sex: Male
  Weight: 84 kg

DRUGS (12)
  1. RAMIPRIL. [Concomitant]
     Active Substance: RAMIPRIL
     Dosage: 1 DOSAGE FORMS 1 DAYS
     Dates: start: 20181017
  2. SPIRONOLACTONE. [Concomitant]
     Active Substance: SPIRONOLACTONE
     Dosage: 1 DOSAGE FORMS 1 DAYS
     Dates: start: 20190304, end: 20190807
  3. LACTULOSE. [Concomitant]
     Active Substance: LACTULOSE
     Dosage: 30 ML 1 DAYS
     Dates: start: 20181017, end: 20190807
  4. ATORVASTATIN [Concomitant]
     Active Substance: ATORVASTATIN
     Dosage: NIGHT 1 DOSAGE FORMS 1 DAYS
     Dates: start: 20181017
  5. SYSTANE (HYPROMELLOSE 2910 (4000 MPA.S)) [Concomitant]
     Active Substance: HYPROMELLOSE 2910 (4000 MPA.S)
     Dosage: ONE TO TWO DROPS TO RIGHT EYE
     Route: 050
     Dates: start: 20190619, end: 20190717
  6. APIXABAN [Concomitant]
     Active Substance: APIXABAN
     Dosage: 2  DOSAGE FORMS 1 DAYS
     Dates: start: 20190304
  7. GLYCERYL TRINITRATE [Concomitant]
     Active Substance: NITROGLYCERIN
     Dosage: USE 1-2 SPRAYS UNDER THE TONGUE
     Route: 060
     Dates: start: 20181017
  8. BISOPROLOL [Concomitant]
     Active Substance: BISOPROLOL
     Dosage: TAKE ONE DAILY IN ADDITION TO USUAL 5MG TABLET (TOTAL DAILY DOSE 10MG) 1 DAYS
     Dates: start: 20190122
  9. SPIRONOLACTONE. [Suspect]
     Active Substance: SPIRONOLACTONE
     Dosage: 25 MG 1 DAYS
     Dates: start: 20190304
  10. CHLORAMPHENICOL [Concomitant]
     Active Substance: CHLORAMPHENICOL
     Dosage: APPLY 4  DOSAGE FORMS 1 DAYS
     Dates: start: 20190606, end: 20190611
  11. DIFFERIN [Concomitant]
     Active Substance: ADAPALENE
     Dosage: APPLY  1 DOSAGE FORMS 1 DAYS
     Dates: start: 20181017
  12. FUROSEMIDE. [Concomitant]
     Active Substance: FUROSEMIDE
     Dosage: MORNING  2 1 DOSAGE FORMS 1 DAYS
     Dates: start: 20190807

REACTIONS (2)
  - Malaise [Unknown]
  - Joint swelling [Recovered/Resolved]

NARRATIVE: CASE EVENT DATE: 20190807
